FAERS Safety Report 10678305 (Version 1)
Quarter: 2014Q4

REPORT INFORMATION
  Report Type: Report from Study
  Country: US (occurrence: US)
  Receive Date: 20141229
  Receipt Date: 20141229
  Transmission Date: 20150529
  Serious: No
  Sender: FDA-Public Use
  Company Number: US-AMGEN INC.-USASL2014100036

PATIENT
  Age: 44 Year
  Sex: Female

DRUGS (2)
  1. HUMIRA [Suspect]
     Active Substance: ADALIMUMAB
     Indication: PRODUCT USED FOR UNKNOWN INDICATION
     Dosage: UNK
     Route: 065
     Dates: start: 201412
  2. ENBREL [Suspect]
     Active Substance: ETANERCEPT
     Indication: RHEUMATOID ARTHRITIS
     Dosage: UNK
     Route: 065
     Dates: start: 20141017, end: 201412

REACTIONS (9)
  - Jaw disorder [Unknown]
  - Rash pruritic [Unknown]
  - Swollen tongue [Unknown]
  - Gingival pain [Unknown]
  - Gingival erythema [Unknown]
  - Injection site pain [Unknown]
  - Oral mucosal erythema [Unknown]
  - Oral disorder [Unknown]
  - Oral pain [Unknown]

NARRATIVE: CASE EVENT DATE: 201412
